FAERS Safety Report 11779676 (Version 1)
Quarter: 2015Q4

REPORT INFORMATION
  Report Type: Spontaneous
  Country: FR (occurrence: FR)
  Receive Date: 20151125
  Receipt Date: 20151125
  Transmission Date: 20160304
  Serious: Yes (Hospitalization)
  Sender: FDA-Public Use
  Company Number: FR-BIOGENIDEC-2015BI155183

PATIENT
  Age: 35 Year
  Sex: Male

DRUGS (3)
  1. XEROQUEL [Concomitant]
     Active Substance: QUETIAPINE FUMARATE
  2. TYSABRI [Suspect]
     Active Substance: NATALIZUMAB
     Indication: MULTIPLE SCLEROSIS
     Route: 042
     Dates: start: 2015
  3. VALIUM [Concomitant]
     Active Substance: DIAZEPAM

REACTIONS (1)
  - Salmonellosis [Not Recovered/Not Resolved]

NARRATIVE: CASE EVENT DATE: 20151025
